FAERS Safety Report 14225244 (Version 1)
Quarter: 2017Q4

REPORT INFORMATION
  Report Type: Spontaneous
  Country: US (occurrence: US)
  Receive Date: 20171127
  Receipt Date: 20171127
  Transmission Date: 20180321
  Serious: Yes (Death)
  Sender: FDA-Public Use
  Company Number: PHEH2017US038114

PATIENT
  Sex: Female

DRUGS (1)
  1. TYKERB [Suspect]
     Active Substance: LAPATINIB DITOSYLATE
     Indication: AGRANULOCYTOSIS
     Dosage: 1250 MG, QD
     Route: 048
     Dates: start: 20171026

REACTIONS (2)
  - Death [Fatal]
  - Product use in unapproved indication [Unknown]
